FAERS Safety Report 17858671 (Version 1)
Quarter: 2020Q2

REPORT INFORMATION
  Report Type: Report from Study
  Country: None (occurrence: US)
  Receive Date: 20200604
  Receipt Date: 20200604
  Transmission Date: 20200714
  Serious: Yes (Other)
  Sender: FDA-Public Use
  Company Number: US-US WORLDMEDS, LLC-USW201911-002219

PATIENT
  Age: 88 Year
  Sex: Male

DRUGS (14)
  1. APOKYN [Suspect]
     Active Substance: APOMORPHINE HYDROCHLORIDE
     Dates: start: 20191115
  2. APOKYN [Suspect]
     Active Substance: APOMORPHINE HYDROCHLORIDE
     Dates: start: 20191118
  3. APOKYN [Suspect]
     Active Substance: APOMORPHINE HYDROCHLORIDE
     Dosage: 3ML CARTRIDGE 1 EA CART
     Route: 058
  4. CYANOCABALAMIN [Concomitant]
  5. SYNTHROID [Concomitant]
     Active Substance: LEVOTHYROXINE SODIUM
  6. APOKYN [Suspect]
     Active Substance: APOMORPHINE HYDROCHLORIDE
     Indication: PARKINSON^S DISEASE
     Route: 058
     Dates: start: 20190916
  7. RIVASTIGMINE. [Concomitant]
     Active Substance: RIVASTIGMINE
  8. SEGELINE [Concomitant]
  9. APOKYN [Suspect]
     Active Substance: APOMORPHINE HYDROCHLORIDE
     Dates: start: 20191113
  10. ENTACAPONE. [Concomitant]
     Active Substance: ENTACAPONE
  11. SINEMET [Concomitant]
     Active Substance: CARBIDOPA\LEVODOPA
  12. VITAMIN B12 [Concomitant]
     Active Substance: CYANOCOBALAMIN
  13. APOKYN [Suspect]
     Active Substance: APOMORPHINE HYDROCHLORIDE
  14. ASA [Concomitant]
     Active Substance: ASPIRIN

REACTIONS (5)
  - Dyskinesia [Not Recovered/Not Resolved]
  - Therapy non-responder [Unknown]
  - Somnolence [Recovered/Resolved]
  - Lack of spontaneous speech [Unknown]
  - Hypotension [Unknown]

NARRATIVE: CASE EVENT DATE: 20191111
